FAERS Safety Report 22598820 (Version 1)
Quarter: 2023Q2

REPORT INFORMATION
  Report Type: Other
  Country: CN (occurrence: None)
  Receive Date: 20230614
  Receipt Date: 20230614
  Transmission Date: 20230721
  Serious: Yes (Other)
  Sender: FDA-Public Use
  Company Number: CN-ROCHE-3367117

PATIENT

DRUGS (1)
  1. RITUXIMAB [Suspect]
     Active Substance: RITUXIMAB
     Indication: Glomerulonephritis membranous
     Route: 042

REACTIONS (8)
  - Pneumonia [Unknown]
  - Oesophagitis [Unknown]
  - Upper respiratory tract infection [Unknown]
  - Urinary tract infection [Unknown]
  - Tonsillitis [Unknown]
  - Gastrointestinal infection [Unknown]
  - Skin infection [Unknown]
  - Soft tissue infection [Unknown]
